FAERS Safety Report 9987200 (Version 1)
Quarter: 2014Q1

REPORT INFORMATION
  Report Type: Report from Study
  Country: US (occurrence: US)
  Receive Date: 20140307
  Receipt Date: 20140307
  Transmission Date: 20141002
  Serious: No
  Sender: FDA-Public Use
  Company Number: US-ABBVIE-13P-163-1081884-00

PATIENT
  Age: 50 Year
  Sex: Female

DRUGS (5)
  1. HUMIRA [Suspect]
     Indication: PSORIATIC ARTHROPATHY
     Dates: start: 20130106
  2. TRIAMCINOLONE [Concomitant]
     Indication: PSORIASIS
     Dosage: 2X DAY FOR 2 WEEKS THEN OFF 1 WEEK
  3. METOPROLOL [Concomitant]
     Indication: HYPERTENSION
  4. ATACAND [Concomitant]
     Indication: HYPERTENSION
  5. XANAX [Concomitant]
     Indication: NERVOUS SYSTEM DISORDER
     Dosage: 1 MG 2 A DAY OR AS NEEDED

REACTIONS (9)
  - Muscle fatigue [Not Recovered/Not Resolved]
  - Paraesthesia [Not Recovered/Not Resolved]
  - Drug ineffective [Unknown]
  - Hypoaesthesia [Not Recovered/Not Resolved]
  - Headache [Not Recovered/Not Resolved]
  - Vision blurred [Not Recovered/Not Resolved]
  - Lacrimation increased [Not Recovered/Not Resolved]
  - Eye irritation [Not Recovered/Not Resolved]
  - Burning sensation [Not Recovered/Not Resolved]
